FAERS Safety Report 6428794-4 (Version None)
Quarter: 2009Q4

REPORT INFORMATION
  Report Type: 
  Country: None (occurrence: None)
  Receive Date: 20091105
  Receipt Date: 20091030
  Transmission Date: 20100525
  Serious: Yes (Other)
  Sender: FDA-Public Use
  Company Number: US-SANOFI-SYNTHELABO-A03200905048

PATIENT
  Age: 64 Year
  Sex: Female

DRUGS (9)
  1. STEROIDS [Suspect]
     Indication: DRUG USE FOR UNKNOWN INDICATION
     Dosage: UNK
     Route: 065
  2. PREVACID [Concomitant]
     Indication: DRUG USE FOR UNKNOWN INDICATION
     Route: 065
  3. ASPIRIN [Concomitant]
     Indication: DRUG USE FOR UNKNOWN INDICATION
     Dosage: UNK
     Route: 065
  4. PLAVIX [Suspect]
     Indication: MYOCARDIAL INFARCTION
     Route: 048
     Dates: start: 20060101
  5. PLAVIX [Suspect]
     Indication: STENT PLACEMENT
     Route: 048
     Dates: start: 20060101
  6. PLAVIX [Suspect]
     Route: 048
  7. PLAVIX [Suspect]
     Route: 048
  8. PLAVIX [Suspect]
     Route: 048
     Dates: start: 20060101, end: 20060101
  9. PLAVIX [Suspect]
     Route: 048
     Dates: start: 20060101, end: 20060101

REACTIONS (6)
  - CHRONIC LYMPHOCYTIC LEUKAEMIA [None]
  - FATIGUE [None]
  - NAIL DISORDER [None]
  - PALLOR [None]
  - SYNCOPE [None]
  - WHITE BLOOD CELL COUNT INCREASED [None]
